FAERS Safety Report 13270839 (Version 1)
Quarter: 2017Q1

REPORT INFORMATION
  Report Type: Report from Study
  Country: US (occurrence: US)
  Receive Date: 20170225
  Receipt Date: 20170225
  Transmission Date: 20170428
  Serious: Yes (Other)
  Sender: FDA-Public Use
  Company Number: US-TEVA-713675ACC

PATIENT

DRUGS (3)
  1. DEXAMETHASONE. [Suspect]
     Active Substance: DEXAMETHASONE
     Indication: PLASMA CELL MYELOMA
     Dosage: 40 MILLIGRAM DAILY; 40 MG, ONCE DAILY ON DAYS 1, 2, 3, 4
     Route: 048
  2. BENDAMUSTINE HYDROCHLORIDE. [Suspect]
     Active Substance: BENDAMUSTINE HYDROCHLORIDE
     Indication: PLASMA CELL MYELOMA
     Dosage: 80 MG/M2, CYCLIC ON DAYS 1, 4
     Route: 042
  3. BORTEZOMIB [Suspect]
     Active Substance: BORTEZOMIB
     Indication: PLASMA CELL MYELOMA
     Dosage: 1.3 MG/M2, UNKNOWN FREQ ON DAYS 1, 4, 8, 11
     Route: 042

REACTIONS (1)
  - Atrial fibrillation [Unknown]
